FAERS Safety Report 9453222 (Version 2)
Quarter: 2013Q3

REPORT INFORMATION
  Report Type: Spontaneous
  Country: US (occurrence: US)
  Receive Date: 20130812
  Receipt Date: 20130909
  Transmission Date: 20140515
  Serious: Yes (Hospitalization, Other)
  Sender: FDA-Public Use
  Company Number: US-PFIZER INC-2013232732

PATIENT
  Sex: Male

DRUGS (1)
  1. LYRICA [Suspect]
     Dosage: 200MG, 3X/DAY

REACTIONS (5)
  - Fall [Unknown]
  - Open fracture [Unknown]
  - Balance disorder [Unknown]
  - Neuropathy peripheral [Unknown]
  - Drug ineffective [Unknown]
